FAERS Safety Report 16719992 (Version 2)
Quarter: 2019Q3

REPORT INFORMATION
  Report Type: Spontaneous
  Country: US (occurrence: US)
  Receive Date: 20190820
  Receipt Date: 20190902
  Transmission Date: 20191005
  Serious: Yes (Other)
  Sender: FDA-Public Use
  Company Number: US-PFIZER INC-2019354982

PATIENT
  Age: 67 Year
  Sex: Female

DRUGS (2)
  1. IBRANCE [Suspect]
     Active Substance: PALBOCICLIB
     Dosage: 125 MG, CYCLIC DAILY
     Route: 048
     Dates: start: 20190808
  2. IBRANCE [Suspect]
     Active Substance: PALBOCICLIB
     Dosage: 125 MG, CYCLIC DAILY
     Route: 048
     Dates: start: 20190807

REACTIONS (8)
  - Irritability [Unknown]
  - Somnolence [Unknown]
  - Asthenia [Recovered/Resolved]
  - Asphyxia [Unknown]
  - Feeling of despair [Unknown]
  - Fatigue [Recovered/Resolved]
  - Anxiety [Unknown]
  - White blood cell count abnormal [Unknown]

NARRATIVE: CASE EVENT DATE: 201908
